FAERS Safety Report 4841819-2 (Version None)
Quarter: 2005Q4

REPORT INFORMATION
  Report Type: 
  Country: None (occurrence: None)
  Receive Date: 20051130
  Receipt Date: 20051121
  Transmission Date: 20060501
  Serious: Yes (Other)
  Sender: FDA-Public Use
  Company Number: US-JNJFOC-20051104236

PATIENT
  Age: 15 Month
  Sex: Male

DRUGS (11)
  1. TYLENOL (CAPLET) [Suspect]
  2. TYLENOL (CAPLET) [Suspect]
     Dosage: 80-320 MG DAILY, INTERMITTENTLY FOR ABOUT 2 WEEKS
  3. EXTRA STRENGTH TYLENOL [Suspect]
     Dosage: 2000 MG DAILY FOR THE 4 DAYS PRIOR TO ADMISSION
  4. EXTRA STRENGTH TYLENOL [Suspect]
     Dosage: 1000-2000 MG DAILY INTERMITTENTLY FOR 1.5 WEEKS
  5. TRIAMINICOL [Suspect]
  6. TRIAMINICOL [Suspect]
  7. TRIAMINICOL [Suspect]
     Dosage: UNSPECIFIED DOSAGE GIVEN INTERMITTENTLY OVER 4 WEEKS
  8. CONTAC [Suspect]
  9. CONTAC [Suspect]
  10. CONTAC [Suspect]
     Dosage: UNSPECIFIED DOSAGE GIVEN INTERMITTENTLY OVER 4 WEEKS
  11. AMPICILLIN [Concomitant]
     Indication: PNEUMONIA

REACTIONS (20)
  - ACTIVATED PARTIAL THROMBOPLASTIN TIME PROLONGED [None]
  - AMMONIA INCREASED [None]
  - BLEEDING TIME PROLONGED [None]
  - CARDIAC MURMUR [None]
  - CHOLESTASIS [None]
  - DECREASED APPETITE [None]
  - ENCEPHALOPATHY [None]
  - HEPATIC FAILURE [None]
  - HEPATIC ISCHAEMIA [None]
  - HEPATIC NECROSIS [None]
  - HEPATOMEGALY [None]
  - INCORRECT DRUG DOSAGE FORM ADMINISTERED [None]
  - INSOMNIA [None]
  - IRRITABILITY [None]
  - LETHARGY [None]
  - OVERDOSE [None]
  - PLEURAL EFFUSION [None]
  - RHONCHI [None]
  - THERAPY NON-RESPONDER [None]
  - UNRESPONSIVE TO VERBAL STIMULI [None]
